FAERS Safety Report 15716922 (Version 8)
Quarter: 2019Q4

REPORT INFORMATION
  Report Type: Spontaneous
  Country: US (occurrence: US)
  Receive Date: 20181213
  Receipt Date: 20191202
  Transmission Date: 20200122
  Serious: No
  Sender: FDA-Public Use
  Company Number: US-PFIZER INC-2018172402

PATIENT
  Age: 72 Year
  Sex: Male

DRUGS (1)
  1. XELJANZ XR [Suspect]
     Active Substance: TOFACITINIB CITRATE
     Indication: RHEUMATOID ARTHRITIS
     Dosage: 11 MG, UNK

REACTIONS (8)
  - Hypoaesthesia [Recovering/Resolving]
  - Malaise [Unknown]
  - Hand deformity [Unknown]
  - Condition aggravated [Unknown]
  - Foot deformity [Unknown]
  - Pain in extremity [Unknown]
  - Peripheral swelling [Unknown]
  - Pain [Unknown]
